FAERS Safety Report 19399605 (Version 2)
Quarter: 2021Q2

REPORT INFORMATION
  Report Type: Spontaneous
  Country: US (occurrence: US)
  Receive Date: 20210610
  Receipt Date: 20210618
  Transmission Date: 20210717
  Serious: Yes (Hospitalization)
  Sender: FDA-Public Use
  Company Number: US-KARYOPHARM-2021KPT000750

PATIENT

DRUGS (1)
  1. XPOVIO [Suspect]
     Active Substance: SELINEXOR
     Indication: PLASMA CELL MYELOMA
     Dosage: 100 MG, WEEKLY
     Route: 048
     Dates: start: 20210519, end: 20210530

REACTIONS (1)
  - Sepsis [Recovering/Resolving]

NARRATIVE: CASE EVENT DATE: 20210530
